FAERS Safety Report 10503765 (Version 1)
Quarter: 2014Q4

REPORT INFORMATION
  Report Type: Spontaneous
  Country: US (occurrence: None)
  Receive Date: 20141007
  Receipt Date: 20141007
  Transmission Date: 20150528
  Serious: Yes (Life-Threatening)
  Sender: FDA-Public Use
  Company Number: None

PATIENT
  Age: 69 Year
  Sex: Female
  Weight: 113.6 kg

DRUGS (1)
  1. SYNTHROID [Suspect]
     Active Substance: LEVOTHYROXINE SODIUM
     Indication: SECONDARY HYPOTHYROIDISM
     Dosage: 35MCG, 1 PER DAY, ORAL
     Route: 048
     Dates: start: 20140922, end: 20140923

REACTIONS (8)
  - Hyperhidrosis [None]
  - Mucous membrane disorder [None]
  - Swelling [None]
  - Hypophagia [None]
  - Skin odour abnormal [None]
  - Malaise [None]
  - Product odour abnormal [None]
  - Inflammation [None]

NARRATIVE: CASE EVENT DATE: 20140922
